FAERS Safety Report 13752845 (Version 1)
Quarter: 2017Q3

REPORT INFORMATION
  Report Type: Spontaneous
  Country: US (occurrence: US)
  Receive Date: 20170714
  Receipt Date: 20170714
  Transmission Date: 20171127
  Serious: No
  Sender: FDA-Public Use
  Company Number: US-PFIZER INC-2017305488

PATIENT
  Sex: Female

DRUGS (2)
  1. FLAXENOL [Suspect]
     Active Substance: ACETAMINOPHEN\NAPROXEN
  2. ADVIL [Suspect]
     Active Substance: IBUPROFEN
     Dosage: UNK

REACTIONS (5)
  - Intentional product misuse [Unknown]
  - Feeling abnormal [Unknown]
  - Oropharyngeal pain [Unknown]
  - Throat irritation [Unknown]
  - Chest pain [Unknown]
